FAERS Safety Report 8179941-8 (Version None)
Quarter: 2012Q1

REPORT INFORMATION
  Report Type: 
  Country: None (occurrence: None)
  Receive Date: 20120302
  Receipt Date: 20120222
  Transmission Date: 20120608
  Serious: Yes (Hospitalization, Other)
  Sender: FDA-Public Use
  Company Number: US-ABBOTT-12P-163-0907795-00

PATIENT
  Weight: 104.42 kg

DRUGS (7)
  1. OMEPRAZOLE [Concomitant]
     Indication: GASTROOESOPHAGEAL REFLUX DISEASE
  2. FOLIC ACID [Concomitant]
     Indication: VITAMIN SUPPLEMENTATION
  3. VITAMIN D [Concomitant]
     Indication: VITAMIN SUPPLEMENTATION
  4. NAPROXEN [Concomitant]
     Indication: RHEUMATOID ARTHRITIS
  5. HUMIRA [Suspect]
     Indication: RHEUMATOID ARTHRITIS
     Dates: start: 20111201
  6. METHOTREXATE [Concomitant]
     Indication: RHEUMATOID ARTHRITIS
  7. CYMBALTA [Concomitant]
     Indication: RHEUMATOID ARTHRITIS

REACTIONS (5)
  - HEART RATE IRREGULAR [None]
  - HYPOTENSION [None]
  - CARDIAC FAILURE [None]
  - DIZZINESS [None]
  - DRUG INEFFECTIVE [None]
